FAERS Safety Report 9191258 (Version 1)
Quarter: 2013Q1

REPORT INFORMATION
  Report Type: Spontaneous
  Country: IT (occurrence: IT)
  Receive Date: 20130326
  Receipt Date: 20130326
  Transmission Date: 20140127
  Serious: Yes (Other)
  Sender: FDA-Public Use
  Company Number: IT-BRISTOL-MYERS SQUIBB COMPANY-18699942

PATIENT
  Age: 81 Year
  Sex: Female

DRUGS (5)
  1. COUMADIN TABS 5 MG [Suspect]
     Dates: start: 20080101, end: 20130225
  2. DILZENE [Concomitant]
     Dates: start: 20110101, end: 20130225
  3. METFORAL [Concomitant]
     Dosage: 500 MG TABLETS
     Dates: start: 20110101, end: 20130225
  4. NETTACIN [Concomitant]
  5. DEXAMETHASONE SODIUM PHOSPHATE [Concomitant]

REACTIONS (2)
  - Cataract [Unknown]
  - Conjunctival haemorrhage [Recovered/Resolved]
